FAERS Safety Report 7514645-3 (Version None)
Quarter: 2011Q2

REPORT INFORMATION
  Report Type: 
  Country: None (occurrence: None)
  Receive Date: 20110601
  Receipt Date: 20110530
  Transmission Date: 20111010
  Serious: Yes (Life-Threatening, Hospitalization)
  Sender: FDA-Public Use
  Company Number: DE-BAYER-2011-046630

PATIENT
  Age: 20 Year
  Sex: Female
  Weight: 54.8 kg

DRUGS (1)
  1. YAZ [Suspect]
     Dosage: UNK
     Dates: start: 20100501, end: 20101206

REACTIONS (5)
  - DYSPNOEA [None]
  - PULMONARY EMBOLISM [None]
  - COR PULMONALE ACUTE [None]
  - TACHYCARDIA [None]
  - PELVIC VENOUS THROMBOSIS [None]
